APPROVED DRUG PRODUCT: AMLODIPINE AND OLMESARTAN MEDOXOMIL
Active Ingredient: AMLODIPINE BESYLATE; OLMESARTAN MEDOXOMIL
Strength: EQ 10MG BASE;40MG
Dosage Form/Route: TABLET;ORAL
Application: A206884 | Product #004 | TE Code: AB
Applicant: MACLEODS PHARMACEUTICALS LTD
Approved: Oct 26, 2016 | RLD: No | RS: No | Type: RX